FAERS Safety Report 17073143 (Version 2)
Quarter: 2020Q1

REPORT INFORMATION
  Report Type: Report from Study
  Country: None (occurrence: US)
  Receive Date: 20191125
  Receipt Date: 20200213
  Transmission Date: 20200409
  Serious: No
  Sender: FDA-Public Use
  Company Number: US-ABBVIE-19K-163-3008707-00

PATIENT
  Age: 63 Year
  Sex: Male

DRUGS (1)
  1. HUMIRA [Suspect]
     Active Substance: ADALIMUMAB
     Indication: RHEUMATOID ARTHRITIS
     Route: 058

REACTIONS (7)
  - Pain [Recovered/Resolved]
  - Joint swelling [Recovered/Resolved]
  - Rotator cuff syndrome [Not Recovered/Not Resolved]
  - Red blood cell sedimentation rate increased [Unknown]
  - Rheumatoid arthritis [Recovered/Resolved]
  - C-reactive protein increased [Unknown]
  - Joint stiffness [Unknown]

NARRATIVE: CASE EVENT DATE: 201702
